FAERS Safety Report 6176216-3 (Version None)
Quarter: 2009Q2

REPORT INFORMATION
  Report Type: 
  Country: None (occurrence: None)
  Receive Date: 20090501
  Receipt Date: 20090422
  Transmission Date: 20091009
  Serious: Yes (Hospitalization)
  Sender: FDA-Public Use
  Company Number: A0776416A

PATIENT
  Age: 57 Year
  Sex: Female
  Weight: 94.5 kg

DRUGS (2)
  1. TYKERB [Suspect]
     Dates: start: 20081001, end: 20090101
  2. UNKNOWN [Concomitant]

REACTIONS (13)
  - ABSCESS [None]
  - CHEST DISCOMFORT [None]
  - CHILLS [None]
  - ERYTHEMA [None]
  - FLUID RETENTION [None]
  - HEPATIC LESION [None]
  - MALAISE [None]
  - MUSCULOSKELETAL PAIN [None]
  - OSTEOSCLEROSIS [None]
  - SPINAL OSTEOARTHRITIS [None]
  - STAPHYLOCOCCAL INFECTION [None]
  - SWELLING [None]
  - TREMOR [None]
